FAERS Safety Report 5329090-9 (Version None)
Quarter: 2007Q2

REPORT INFORMATION
  Report Type: 
  Country: None (occurrence: None)
  Receive Date: 20070518
  Receipt Date: 20070507
  Transmission Date: 20071010
  Serious: Yes (Death, Hospitalization, Other)
  Sender: FDA-Public Use
  Company Number: US-PFIZER INC-2006130352

PATIENT
  Sex: Female
  Weight: 49.9 kg

DRUGS (2)
  1. CELEBREX [Suspect]
     Indication: ANTIINFLAMMATORY THERAPY
     Route: 048
     Dates: start: 20001014, end: 20001213
  2. CELEBREX [Suspect]
     Indication: ARTHRALGIA

REACTIONS (2)
  - CARDIAC FAILURE [None]
  - MYOCARDIAL INFARCTION [None]
